FAERS Safety Report 18583627 (Version 1)
Quarter: 2020Q4

REPORT INFORMATION
  Report Type: Spontaneous
  Country: JP (occurrence: JP)
  Receive Date: 20201207
  Receipt Date: 20201207
  Transmission Date: 20210114
  Serious: Yes (Hospitalization)
  Sender: FDA-Public Use
  Company Number: JP-SA-2020SA346768

PATIENT

DRUGS (3)
  1. ELPLAT [Suspect]
     Active Substance: OXALIPLATIN
     Dosage: UNK
     Route: 041
  2. CAPECITABINE. [Concomitant]
     Active Substance: CAPECITABINE
     Dosage: UNK
  3. ELPLAT [Suspect]
     Active Substance: OXALIPLATIN
     Indication: COLON CANCER
     Dosage: 25 MG, Q3W
     Route: 041

REACTIONS (4)
  - Adams-Stokes syndrome [Recovering/Resolving]
  - Skull fracture [Unknown]
  - Subarachnoid haemorrhage [Unknown]
  - Brain contusion [Unknown]
